FAERS Safety Report 8101528-3 (Version None)
Quarter: 2012Q1

REPORT INFORMATION
  Report Type: 
  Country: None (occurrence: None)
  Receive Date: 20120129
  Receipt Date: 20110919
  Transmission Date: 20120608
  Serious: No
  Sender: FDA-Public Use
  Company Number: US-ABBOTT-11P-163-0855679-00

PATIENT
  Sex: Female

DRUGS (10)
  1. HUMIRA [Suspect]
     Indication: RHEUMATOID ARTHRITIS
     Route: 058
     Dates: start: 20080101
  2. HUMIRA [Suspect]
     Indication: PSORIATIC ARTHROPATHY
  3. UNKNOWN ANTI-INFLAMMATORY [Concomitant]
     Indication: OSTEOARTHRITIS
  4. HYDROCODONE BITARTRATE [Concomitant]
     Indication: OSTEOARTHRITIS
     Dates: start: 20080101
  5. ADVAIR DISKUS 100/50 [Concomitant]
     Indication: ASTHMA
  6. UNKNOWN ANTI-INFLAMMATORY [Concomitant]
     Indication: RHEUMATOID ARTHRITIS
  7. SPIRIVA [Concomitant]
     Indication: ASTHMA
  8. METHOTREXATE [Concomitant]
     Indication: RHEUMATOID ARTHRITIS
     Dosage: 2.5 MG TABLETS WEEKLY
  9. METHOTREXATE [Concomitant]
     Indication: PSORIATIC ARTHROPATHY
  10. UNKNOWN VITAMINS [Concomitant]
     Indication: VITAMIN SUPPLEMENTATION

REACTIONS (4)
  - RHINORRHOEA [None]
  - COUGH [None]
  - PAIN IN EXTREMITY [None]
  - INJECTION SITE HAEMATOMA [None]
